FAERS Safety Report 13922246 (Version 3)
Quarter: 2018Q4

REPORT INFORMATION
  Report Type: Report from Study
  Country: US (occurrence: US)
  Receive Date: 20170830
  Receipt Date: 20181001
  Transmission Date: 20190204
  Serious: Yes (Other)
  Sender: FDA-Public Use
  Company Number: PHEH2017US027650

PATIENT
  Sex: Male

DRUGS (2)
  1. COSENTYX [Suspect]
     Active Substance: SECUKINUMAB
     Indication: PSORIATIC ARTHROPATHY
     Dosage: 300 MG, QW (ONCE WEEKLY FOR 5 WEEKS THEN ONCE A MONTH)
     Route: 058
     Dates: start: 20170401
  2. COSENTYX [Suspect]
     Active Substance: SECUKINUMAB
     Dosage: 300 MG,  (ONCE WEEKLY FOR 5 WEEKS THEN ONCE A MONTH)
     Route: 058
     Dates: start: 20170814, end: 20170824

REACTIONS (3)
  - Malaise [Unknown]
  - Psoriatic arthropathy [Unknown]
  - Blood iron decreased [Unknown]
